FAERS Safety Report 12901972 (Version 2)
Quarter: 2016Q4

REPORT INFORMATION
  Report Type: Report from Study
  Country: US (occurrence: US)
  Receive Date: 20161102
  Receipt Date: 20161124
  Transmission Date: 20170207
  Serious: Yes (Other)
  Sender: FDA-Public Use
  Company Number: US-GILEAD-2016-0237409

PATIENT
  Age: 59 Year
  Sex: Female

DRUGS (6)
  1. SILDENAFIL. [Concomitant]
     Active Substance: SILDENAFIL
  2. AMBRISENTAN [Suspect]
     Active Substance: AMBRISENTAN
     Indication: PULMONARY HYPERTENSION
     Dosage: 5 MG, QD
     Route: 065
     Dates: start: 20151109, end: 20160922
  3. MICARDIS [Concomitant]
     Active Substance: TELMISARTAN
  4. COREG [Concomitant]
     Active Substance: CARVEDILOL
  5. ASPIRIN                            /00002701/ [Concomitant]
     Active Substance: ASPIRIN
  6. DEXILANT [Concomitant]
     Active Substance: DEXLANSOPRAZOLE

REACTIONS (10)
  - Chest discomfort [Unknown]
  - Intracranial aneurysm [Unknown]
  - Malaise [Unknown]
  - Blood iron decreased [Unknown]
  - Gastric disorder [Unknown]
  - Headache [Unknown]
  - Anaemia [Unknown]
  - Fatigue [Unknown]
  - Internal haemorrhage [Unknown]
  - Dizziness [Unknown]
